FAERS Safety Report 8412441-6 (Version None)
Quarter: 2012Q2

REPORT INFORMATION
  Report Type: 
  Country: None (occurrence: None)
  Receive Date: 20120605
  Receipt Date: 20120530
  Transmission Date: 20120825
  Serious: Yes (Death)
  Sender: FDA-Public Use
  Company Number: US-CELGENEUS-163-20785-12051407

PATIENT
  Sex: Female
  Weight: 59.474 kg

DRUGS (20)
  1. NOVOLIN 70/30 [Concomitant]
     Dosage: 70/30
     Route: 065
  2. LOVASTATIN [Concomitant]
     Dosage: 20 MILLIGRAM
     Route: 065
  3. MORPHINE [Concomitant]
     Dosage: 60 MILLIGRAM
     Route: 065
  4. HYDROCODONE [Concomitant]
     Dosage: 5/500MG
     Route: 065
  5. CITALOPRAM HYDROBROMIDE [Concomitant]
     Dosage: 40 MILLIGRAM
     Route: 065
  6. DIOVAN HCT [Concomitant]
     Dosage: 160-12.5MG
     Route: 065
  7. DEXAMETHASONE [Concomitant]
     Dosage: 4 MILLIGRAM
     Route: 065
  8. THALOMID [Suspect]
     Indication: MULTIPLE MYELOMA
     Dosage: 50 MILLIGRAM
     Route: 048
     Dates: start: 20091016, end: 20120502
  9. ASPIRIN [Concomitant]
     Dosage: 81 MILLIGRAM
     Route: 065
  10. DOCUSATE SODIUM [Concomitant]
     Dosage: 100 MILLIGRAM
     Route: 065
  11. FUROSEMIDE [Concomitant]
     Dosage: 40 MILLIGRAM
     Route: 065
  12. TRICOR [Concomitant]
     Dosage: 145 MILLIGRAM
     Route: 065
  13. PLAVIX [Concomitant]
     Dosage: 75 MILLIGRAM
     Route: 065
  14. GABAPENTIN [Concomitant]
     Dosage: 300 MILLIGRAM
     Route: 065
  15. POTASSIUM CHLORIDE [Concomitant]
     Dosage: 10
     Route: 065
  16. MIRTAZAPINE [Concomitant]
     Dosage: 15 MILLIGRAM
     Route: 065
  17. OMEPRAZOLE [Concomitant]
     Dosage: 20 MILLIGRAM
     Route: 065
  18. METOPROLOL TARTRATE [Concomitant]
     Dosage: 50 MILLIGRAM
     Route: 065
  19. LISINOPRIL [Concomitant]
     Dosage: 20 MILLIGRAM
     Route: 065
  20. ISOSORBIDE MONO [Concomitant]
     Dosage: 60 MILLIGRAM
     Route: 065

REACTIONS (2)
  - PNEUMATOSIS [None]
  - INTESTINAL ISCHAEMIA [None]
